FAERS Safety Report 9507151 (Version 1)
Quarter: 2013Q3

REPORT INFORMATION
  Report Type: Spontaneous
  Country: FR (occurrence: None)
  Receive Date: 20130904
  Receipt Date: 20130904
  Transmission Date: 20140515
  Serious: Yes (Death, Hospitalization)
  Sender: FDA-Public Use
  Company Number: 2013P1018918

PATIENT
  Age: 87 Year
  Sex: Male

DRUGS (13)
  1. ALFUZOSIN [Suspect]
     Route: 048
     Dates: end: 20130312
  2. PARACETAMOL [Suspect]
     Indication: PAIN
     Route: 048
     Dates: end: 201303
  3. LASILIX FABILE [Suspect]
     Indication: HYPERTENSION
     Dosage: QAM
     Route: 048
     Dates: end: 20130318
  4. AMIODARONE HYDROCHLORIDE [Suspect]
     Indication: ARRHYTHMIA
     Route: 048
     Dates: end: 20130320
  5. KARDEGIC [Suspect]
     Indication: PLATELET AGGREGATION INHIBITION
     Route: 048
     Dates: end: 20130320
  6. PERINDOPRIL [Suspect]
     Indication: HYPERTENSION
     Dosage: QAM
     Route: 048
     Dates: end: 20130318
  7. ZOLPIDEM [Suspect]
     Indication: INSOMNIA
     Dosage: QPM
     Route: 048
     Dates: end: 20130318
  8. PANTOPRAZOLE [Suspect]
     Indication: PROPHYLAXIS
     Route: 048
     Dates: end: 20130320
  9. SPECIAFOLDINE [Suspect]
     Indication: FOLATE DEFICIENCY
     Route: 048
     Dates: end: 20130320
  10. ALLOPURINOL [Suspect]
     Route: 048
     Dates: end: 20130312
  11. PERFALGAN [Suspect]
     Indication: PAIN
     Route: 042
     Dates: start: 20130317, end: 20130321
  12. LEVOTHYROX [Suspect]
     Indication: HYPOTHYROIDISM
     Dosage: QAM
     Route: 048
     Dates: end: 20130320
  13. AUGMENTIN [Suspect]
     Dates: start: 20130313, end: 20130317

REACTIONS (14)
  - Fall [None]
  - Cardiac failure [None]
  - Hepatic enzyme increased [None]
  - Haemangioma [None]
  - Renal failure chronic [None]
  - Hepatomegaly [None]
  - Somnolence [None]
  - Hyponatraemia [None]
  - Aspartate aminotransferase increased [None]
  - Alanine aminotransferase increased [None]
  - Gamma-glutamyltransferase increased [None]
  - C-reactive protein increased [None]
  - Blood bilirubin increased [None]
  - Bilirubin conjugated increased [None]
